FAERS Safety Report 6063970-4 (Version None)
Quarter: 2009Q1

REPORT INFORMATION
  Report Type: 
  Country: None (occurrence: None)
  Receive Date: 20090204
  Receipt Date: 20090127
  Transmission Date: 20090719
  Serious: Yes (Hospitalization, Other)
  Sender: FDA-Public Use
  Company Number: US-AMGEN-QUU325214

PATIENT
  Sex: Male
  Weight: 99.4 kg

DRUGS (26)
  1. ARANESP [Suspect]
     Indication: RENAL FAILURE CHRONIC
     Route: 065
     Dates: end: 20081126
  2. FERROUS SULFATE TAB [Concomitant]
  3. COUMADIN [Concomitant]
  4. MEGACE [Concomitant]
  5. LIPITOR [Concomitant]
     Route: 048
  6. HYDRALAZINE HCL [Concomitant]
     Route: 048
  7. ASPIRIN [Concomitant]
     Route: 048
  8. SULFAMETHOXAZOLE AND TRIMETHOPRIM [Concomitant]
     Route: 048
  9. ZEMPLAR [Concomitant]
     Route: 048
  10. LANTUS [Concomitant]
     Route: 058
  11. LISINOPRIL [Concomitant]
     Route: 048
  12. METOPROLOL SUCCINATE [Concomitant]
     Route: 048
  13. PREDNISONE [Concomitant]
     Route: 048
  14. PROGRAF [Concomitant]
     Route: 048
  15. CELLCEPT [Concomitant]
     Route: 048
  16. VITAMIN B COMPLEX CAP [Concomitant]
  17. ALLOPURINOL [Concomitant]
  18. SODIUM BICARBONATE [Concomitant]
     Route: 048
  19. COMPAZINE [Concomitant]
  20. MULTI-VITAMINS [Concomitant]
  21. CLONIDINE HCL [Concomitant]
  22. HUMALOG [Concomitant]
  23. CEREFOLIN [Concomitant]
  24. CIALIS [Concomitant]
  25. HYDROCODONE [Concomitant]
  26. FOLTX [Concomitant]

REACTIONS (11)
  - ANAEMIA [None]
  - DEEP VEIN THROMBOSIS [None]
  - DIABETES MELLITUS [None]
  - DRUG INEFFECTIVE [None]
  - EPISTAXIS [None]
  - ERECTILE DYSFUNCTION [None]
  - FALL [None]
  - GOUT [None]
  - HYPERCHOLESTEROLAEMIA [None]
  - HYPERHOMOCYSTEINAEMIA [None]
  - VITAMIN B12 DEFICIENCY [None]
